FAERS Safety Report 25353082 (Version 2)
Quarter: 2025Q2

REPORT INFORMATION
  Report Type: Spontaneous
  Country: US (occurrence: US)
  Receive Date: 20250523
  Receipt Date: 20250612
  Transmission Date: 20250716
  Serious: Yes (Hospitalization)
  Sender: SANDOZ
  Company Number: US-SANDOZ-SDZ2024US103617

PATIENT
  Age: 58 Year
  Sex: Female

DRUGS (2)
  1. ADALIMUMAB [Interacting]
     Active Substance: ADALIMUMAB
     Indication: Hidradenitis
     Dosage: 40 MG, QW
     Route: 058
  2. ADALIMUMAB [Interacting]
     Active Substance: ADALIMUMAB
     Dosage: 40 MG/KG, QW
     Route: 058
     Dates: end: 20250518

REACTIONS (3)
  - Urinary tract infection [Unknown]
  - Drug interaction [Unknown]
  - Therapy interrupted [Unknown]

NARRATIVE: CASE EVENT DATE: 20241213
